FAERS Safety Report 4803344-4 (Version None)
Quarter: 2005Q4

REPORT INFORMATION
  Report Type: 
  Country: None (occurrence: None)
  Receive Date: 20051019
  Receipt Date: 20051011
  Transmission Date: 20060501
  Serious: Yes (Other)
  Sender: FDA-Public Use
  Company Number: 200512930JP

PATIENT
  Age: 53 Year
  Sex: Male

DRUGS (2)
  1. ALLEGRA [Suspect]
     Indication: URTICARIA
     Dates: start: 20050716, end: 20051005
  2. GASTER [Concomitant]
     Dates: start: 20050716, end: 20051005

REACTIONS (3)
  - HYPOAESTHESIA [None]
  - HYPOAESTHESIA ORAL [None]
  - MUSCLE TWITCHING [None]
